FAERS Safety Report 5582688-5 (Version None)
Quarter: 2007Q4

REPORT INFORMATION
  Report Type: 
  Country: None (occurrence: None)
  Receive Date: 20071231
  Receipt Date: 20071220
  Transmission Date: 20080405
  Serious: Yes (Other)
  Sender: FDA-Public Use
  Company Number: 2007BI016890

PATIENT
  Age: 55 Year
  Sex: Male
  Weight: 69 kg

DRUGS (3)
  1. NATALIZUMAB (NATALIZUMAB) [Suspect]
     Indication: RELAPSING-REMITTING MULTIPLE SCLEROSIS
     Dosage: 300 MG;QM;IV
     Route: 042
     Dates: start: 20060718, end: 20070726
  2. CIPRALEX [Concomitant]
  3. MIRTAZAPINE [Concomitant]

REACTIONS (3)
  - HELICOBACTER GASTRITIS [None]
  - METASTASES TO LIVER [None]
  - PANCREATIC CARCINOMA [None]
